FAERS Safety Report 4644526-4 (Version None)
Quarter: 2005Q2

REPORT INFORMATION
  Report Type: 
  Country: None (occurrence: None)
  Receive Date: 20050426
  Receipt Date: 20050414
  Transmission Date: 20051028
  Serious: Yes (Death)
  Sender: FDA-Public Use
  Company Number: US-JNJFOC-20050400374

PATIENT

DRUGS (4)
  1. REMICADE [Suspect]
     Indication: CROHN'S DISEASE
     Route: 042
  2. TYSABRI [Suspect]
     Indication: CROHN'S DISEASE
  3. AZATHIOPRINE [Suspect]
     Indication: CROHN'S DISEASE
  4. IMMUNOSUPPRESSANT DRUGS [Concomitant]

REACTIONS (1)
  - PROGRESSIVE MULTIFOCAL LEUKOENCEPHALOPATHY [None]
